FAERS Safety Report 16861238 (Version 1)
Quarter: 2019Q3

REPORT INFORMATION
  Report Type: Spontaneous
  Country: DE (occurrence: DE)
  Receive Date: 20190927
  Receipt Date: 20190927
  Transmission Date: 20191005
  Serious: Yes (Hospitalization)
  Sender: FDA-Public Use
  Company Number: DE-SA-2019SA244249

PATIENT
  Age: 56 Year
  Sex: Male

DRUGS (1)
  1. AUBAGIO [Suspect]
     Active Substance: TERIFLUNOMIDE
     Indication: MULTIPLE SCLEROSIS
     Dosage: 14 MG, QD, 1-0-0
     Route: 048
     Dates: start: 20180221, end: 20190816

REACTIONS (4)
  - Weight decreased [Unknown]
  - Gastrointestinal polyp [Recovered/Resolved]
  - Anaemia [Unknown]
  - Hypothyroidism [Unknown]
